FAERS Safety Report 20068349 (Version 1)
Quarter: 2021Q4

REPORT INFORMATION
  Report Type: Spontaneous
  Country: FR (occurrence: FR)
  Receive Date: 20211115
  Receipt Date: 20211115
  Transmission Date: 20220303
  Serious: Yes (Hospitalization, Congenital Anomaly, Other)
  Sender: FDA-Public Use
  Company Number: FR-ABBVIE-21K-056-4153549-00

PATIENT
  Sex: Female
  Weight: 2.22 kg

DRUGS (2)
  1. VALPROATE SODIUM [Suspect]
     Active Substance: VALPROATE SODIUM
     Indication: Product used for unknown indication
     Route: 064
     Dates: start: 19941115, end: 19950716
  2. LEUCOVORIN CALCIUM [Concomitant]
     Active Substance: LEUCOVORIN CALCIUM
     Indication: Product used for unknown indication

REACTIONS (75)
  - Syncope [Unknown]
  - Psychomotor retardation [Unknown]
  - Dysmorphism [Unknown]
  - Foetal exposure during pregnancy [Unknown]
  - Malpositioned teeth [Unknown]
  - Finger deformity [Unknown]
  - Limb malformation [Unknown]
  - Autism spectrum disorder [Unknown]
  - Psychomotor retardation [Unknown]
  - Balance disorder [Unknown]
  - Tooth malformation [Unknown]
  - Joint hyperextension [Unknown]
  - Learning disorder [Unknown]
  - Social (pragmatic) communication disorder [Unknown]
  - Learning disability [Unknown]
  - Emotional disorder [Unknown]
  - Cyclothymic disorder [Unknown]
  - Cognitive disorder [Unknown]
  - Disturbance in attention [Unknown]
  - Disturbance in attention [Unknown]
  - Dysgraphia [Unknown]
  - Disturbance in social behaviour [Unknown]
  - Hypoaesthesia [Unknown]
  - Arrhythmia [Unknown]
  - Partial seizures [Unknown]
  - Sinus bradycardia [Unknown]
  - Myoclonic epilepsy [Unknown]
  - Sinus tachycardia [Unknown]
  - Sinus arrhythmia [Unknown]
  - Speech disorder developmental [Unknown]
  - Depressed mood [Unknown]
  - Anger [Unknown]
  - Behaviour disorder [Unknown]
  - Dyslexia [Unknown]
  - Clinodactyly [Unknown]
  - Speech sound disorder [Unknown]
  - Dysgraphia [Unknown]
  - Amnesia [Unknown]
  - Autism spectrum disorder [Unknown]
  - Executive dysfunction [Unknown]
  - Epilepsy [Unknown]
  - Arrhythmia [Unknown]
  - Anxiety [Unknown]
  - Visual impairment [Unknown]
  - Cardiac disorder [Unknown]
  - Generalised tonic-clonic seizure [Unknown]
  - Phobia [Unknown]
  - Impulsive behaviour [Unknown]
  - School refusal [Unknown]
  - Memory impairment [Unknown]
  - Antisocial behaviour [Unknown]
  - Mixed anxiety and depressive disorder [Unknown]
  - Pyelonephritis acute [Unknown]
  - Malaise [Unknown]
  - Ear infection [Unknown]
  - Pasteurella infection [Unknown]
  - Ligament sprain [Unknown]
  - Fallopian tube cyst [Unknown]
  - Rhinitis [Unknown]
  - Fatigue [Unknown]
  - Sinusitis [Unknown]
  - Throat tightness [Unknown]
  - Back pain [Unknown]
  - Neck pain [Unknown]
  - Meningitis [Unknown]
  - Suicide attempt [Unknown]
  - Tension headache [Unknown]
  - Abdominal pain [Unknown]
  - Abdominal pain upper [Unknown]
  - Ovarian cyst [Unknown]
  - Sleep disorder [Unknown]
  - Nightmare [Unknown]
  - Appendicectomy [Unknown]
  - Bronchitis [Unknown]
  - Live birth [Unknown]

NARRATIVE: CASE EVENT DATE: 19960101
